FAERS Safety Report 6340781-3 (Version None)
Quarter: 2009Q3

REPORT INFORMATION
  Report Type: 
  Country: None (occurrence: None)
  Receive Date: 20090904
  Receipt Date: 20090831
  Transmission Date: 20100115
  Serious: Yes (Disabling, Other)
  Sender: FDA-Public Use
  Company Number: CA-BAYER-200931667NA

PATIENT
  Age: 64 Year
  Sex: Female
  Weight: 69 kg

DRUGS (1)
  1. AVELOX [Suspect]
     Indication: DRUG USE FOR UNKNOWN INDICATION
     Route: 048

REACTIONS (11)
  - ANXIETY [None]
  - COMMUNICATION DISORDER [None]
  - DEPRESSED MOOD [None]
  - DISSOCIATION [None]
  - FEELING ABNORMAL [None]
  - HEADACHE [None]
  - HYPERTENSION [None]
  - INITIAL INSOMNIA [None]
  - IRRITABILITY [None]
  - LACK OF SPONTANEOUS SPEECH [None]
  - NERVOUS SYSTEM DISORDER [None]
